FAERS Safety Report 15644625 (Version 1)
Quarter: 2018Q4

REPORT INFORMATION
  Report Type: Other
  Country: CZ (occurrence: CZ)
  Receive Date: 20181121
  Receipt Date: 20181121
  Transmission Date: 20190205
  Serious: Yes (Disabling)
  Sender: FDA-Public Use
  Company Number: CZ-ASPEN-GLO2018CZ011709

PATIENT
  Sex: Female

DRUGS (1)
  1. DESOGESTREL, ETHINYLESTRADIOL [Suspect]
     Active Substance: DESOGESTREL
     Indication: CONTRACEPTION
     Dosage: 1 DF, QD
     Route: 048

REACTIONS (3)
  - Back pain [Unknown]
  - Malaise [Unknown]
  - Breast enlargement [Not Recovered/Not Resolved]
